FAERS Safety Report 7299177-2 (Version None)
Quarter: 2011Q1

REPORT INFORMATION
  Report Type: 
  Country: None (occurrence: None)
  Receive Date: 20110215
  Receipt Date: 20110215
  Transmission Date: 20110831
  Serious: Yes (Life-Threatening, Hospitalization, Disabling, Other)
  Sender: FDA-Public Use
  Company Number: None

PATIENT
  Sex: Female
  Weight: 65.7716 kg

DRUGS (1)
  1. TRIAD ALCOHOL PREP PAD. 1 WIPE USED TO CLEAN INJECTION SITE [Suspect]
     Indication: THERAPEUTIC SKIN CARE TOPICAL
     Dosage: LEFT THIGH
     Dates: start: 20091215

REACTIONS (7)
  - MUSCLE ATROPHY [None]
  - INFECTION [None]
  - PAIN IN EXTREMITY [None]
  - SCAR [None]
  - OEDEMA PERIPHERAL [None]
  - SURGERY [None]
  - INJURY [None]
